FAERS Safety Report 8383687-0 (Version None)
Quarter: 2012Q1

REPORT INFORMATION
  Report Type: 
  Country: None (occurrence: None)
  Receive Date: 20120323
  Receipt Date: 20110301
  Transmission Date: 20120608
  Serious: Yes (Other)
  Sender: FDA-Public Use
  Company Number: 163-21880-11030544

PATIENT
  Age: 63 Year
  Sex: Male
  Weight: 67.1 kg

DRUGS (2)
  1. REVLIMID [Suspect]
     Indication: MULTIPLE MYELOMA
     Dosage: 15 MG, DAILY FOR 14 DAYS, THEN 14 DAYS OFF, PO
     Route: 048
     Dates: start: 20101014
  2. REVLIMID [Suspect]
     Indication: MULTIPLE MYELOMA
     Dosage: 15 MG, DAILY FOR 14 DAYS, THEN 14 DAYS OFF, PO
     Route: 048
     Dates: start: 20100429, end: 20100825

REACTIONS (1)
  - SINUSITIS [None]
